FAERS Safety Report 18118902 (Version 2)
Quarter: 2021Q3

REPORT INFORMATION
  Report Type: Spontaneous
  Country: US (occurrence: US)
  Receive Date: 20200806
  Receipt Date: 20210906
  Transmission Date: 20211014
  Serious: Yes (Other)
  Sender: FDA-Public Use
  Company Number: US-PFIZER INC-2020297035

PATIENT
  Age: 61 Year
  Sex: Female

DRUGS (2)
  1. XELJANZ XR [Suspect]
     Active Substance: TOFACITINIB CITRATE
     Dosage: 11 MG
     Dates: start: 20200501
  2. XELJANZ XR [Suspect]
     Active Substance: TOFACITINIB CITRATE
     Dosage: UNK
     Dates: start: 20200401

REACTIONS (5)
  - Psoriatic arthropathy [Unknown]
  - Arthralgia [Unknown]
  - COVID-19 [Unknown]
  - Pain in extremity [Unknown]
  - Weight increased [Unknown]

NARRATIVE: CASE EVENT DATE: 202101
